FAERS Safety Report 7656989-0 (Version None)
Quarter: 2011Q3

REPORT INFORMATION
  Report Type: 
  Country: None (occurrence: None)
  Receive Date: 20110802
  Receipt Date: 20110719
  Transmission Date: 20111222
  Serious: Yes (Other)
  Sender: FDA-Public Use
  Company Number: 2011-2497

PATIENT
  Age: 36 Year
  Sex: Male

DRUGS (1)
  1. LANTEOTIDE ACETATE NOS (LANREOTIDE) (LANREOTIDE ACETATE) [Suspect]
     Indication: ACROMEGALY

REACTIONS (2)
  - MENINGITIS [None]
  - INTRACRANIAL HYPOTENSION [None]
